FAERS Safety Report 13791550 (Version 4)
Quarter: 2020Q1

REPORT INFORMATION
  Report Type: Spontaneous
  Country: JP (occurrence: JP)
  Receive Date: 20170725
  Receipt Date: 20200304
  Transmission Date: 20200409
  Serious: Yes (Life-Threatening, Hospitalization)
  Sender: FDA-Public Use
  Company Number: JP-ABBVIE-12P-087-0975200-00

PATIENT
  Age: 45 Year
  Sex: Male
  Weight: 67 kg

DRUGS (15)
  1. PREDNISOLONE. [Suspect]
     Active Substance: PREDNISOLONE
     Dosage: 10 MILLIGRAM
     Route: 065
     Dates: start: 20120615, end: 20120619
  2. REMICADE [Suspect]
     Active Substance: INFLIXIMAB
     Indication: PUSTULAR PSORIASIS
     Route: 065
     Dates: start: 20120312, end: 20120423
  3. HYDROCORTISONE. [Concomitant]
     Active Substance: HYDROCORTISONE
     Dosage: 22.5MILLIGRAM
     Route: 048
     Dates: start: 20120622, end: 20120705
  4. PREDNISOLONE. [Suspect]
     Active Substance: PREDNISOLONE
     Indication: PUSTULAR PSORIASIS
     Dosage: 40 MILLIGRAM
     Route: 065
     Dates: start: 20120608, end: 20120609
  5. PREDNISOLONE. [Suspect]
     Active Substance: PREDNISOLONE
     Dosage: 20 MILLIGRAM
     Route: 065
     Dates: start: 20120612
  6. PREDNISOLONE. [Suspect]
     Active Substance: PREDNISOLONE
     Dosage: 30 MILLIGRAM
     Route: 065
     Dates: start: 20120610
  7. REMICADE [Suspect]
     Active Substance: INFLIXIMAB
     Route: 065
     Dates: start: 201205, end: 201206
  8. HUMIRA [Suspect]
     Active Substance: ADALIMUMAB
     Route: 058
     Dates: start: 20120622, end: 20120622
  9. FLUTICASONE PROPIONATE. [Concomitant]
     Active Substance: FLUTICASONE PROPIONATE
     Indication: PRODUCT USED FOR UNKNOWN INDICATION
  10. CICLOSPORIN [Concomitant]
     Active Substance: CYCLOSPORINE
     Indication: PSORIASIS
     Dates: start: 200007
  11. PREDNISOLONE. [Suspect]
     Active Substance: PREDNISOLONE
     Dosage: 5 MILLIGRAM
     Route: 065
     Dates: start: 20120619, end: 20120621
  12. HYDROCORTISONE. [Concomitant]
     Active Substance: HYDROCORTISONE
     Indication: STEROID WITHDRAWAL SYNDROME
     Dosage: 10-20MG, 1-2 TIMES/5 WEEKS
     Route: 048
     Dates: start: 20120622, end: 20120818
  13. HUMIRA [Suspect]
     Active Substance: ADALIMUMAB
     Indication: PUSTULAR PSORIASIS
     Route: 058
     Dates: start: 20120706, end: 20120803
  14. SAXIZON [Suspect]
     Active Substance: HYDROCORTISONE SODIUM SUCCINATE
     Indication: PUSTULAR PSORIASIS
     Dosage: 200 MILLIGRAM
     Route: 065
     Dates: start: 20120528, end: 20120607
  15. BETAMETHASONE BUTYRATE PROPIONATE [Concomitant]
     Active Substance: BETAMETHASONE BUTYRATE PROPIONATE
     Indication: PSORIASIS
     Route: 061
     Dates: start: 20120622, end: 20120818

REACTIONS (7)
  - Disseminated tuberculosis [Not Recovered/Not Resolved]
  - Pustular psoriasis [Unknown]
  - Serum ferritin increased [Unknown]
  - Metastatic lymphoma [Unknown]
  - Pyrexia [Unknown]
  - Hepatic function abnormal [Unknown]
  - Septic shock [Unknown]

NARRATIVE: CASE EVENT DATE: 20120818
